FAERS Safety Report 25328807 (Version 4)
Quarter: 2025Q3

REPORT INFORMATION
  Report Type: Report from Study
  Country: US (occurrence: US)
  Receive Date: 20250519
  Receipt Date: 20250711
  Transmission Date: 20251020
  Serious: No
  Sender: ACADIA PHARMACEUTICALS
  Company Number: US-ACADIA PHARMACEUTICALS INC.-ACA-2025-PIM-005746

PATIENT
  Age: 66 Year
  Sex: Female
  Weight: 44 kg

DRUGS (14)
  1. NUPLAZID [Suspect]
     Active Substance: PIMAVANSERIN TARTRATE
     Indication: Hallucination
     Dosage: 34 MILLIGRAM, QD
     Route: 048
     Dates: start: 20250319, end: 20250507
  2. NUPLAZID [Suspect]
     Active Substance: PIMAVANSERIN TARTRATE
     Indication: Parkinson^s disease
  3. NUPLAZID [Suspect]
     Active Substance: PIMAVANSERIN TARTRATE
     Indication: Parkinson^s disease psychosis
  4. QUETIAPINE [Concomitant]
     Active Substance: QUETIAPINE
  5. SYNTHROID [Concomitant]
     Active Substance: LEVOTHYROXINE SODIUM
  6. CARBIDOPA\LEVODOPA [Concomitant]
     Active Substance: CARBIDOPA\LEVODOPA
  7. DULOXETINE [Concomitant]
     Active Substance: DULOXETINE
  8. RIVASTIGMINE [Concomitant]
     Active Substance: RIVASTIGMINE
  9. DIAZEPAM [Concomitant]
     Active Substance: DIAZEPAM
  10. SINEMET [Concomitant]
     Active Substance: CARBIDOPA\LEVODOPA
  11. LASIX [Concomitant]
     Active Substance: FUROSEMIDE
  12. HYOSCYAMINE [Concomitant]
     Active Substance: HYOSCYAMINE
  13. INDOMETHACIN [Concomitant]
     Active Substance: INDOMETHACIN
  14. QUETIAPINE [Concomitant]
     Active Substance: QUETIAPINE

REACTIONS (6)
  - Hypersomnia [Recovered/Resolved]
  - Decreased appetite [Recovered/Resolved]
  - Adverse drug reaction [Recovered/Resolved]
  - Fatigue [Unknown]
  - Communication disorder [Recovered/Resolved]
  - Peripheral swelling [Not Recovered/Not Resolved]

NARRATIVE: CASE EVENT DATE: 20250425
